FAERS Safety Report 10186483 (Version 8)
Quarter: 2015Q3

REPORT INFORMATION
  Report Type: Spontaneous
  Country: US (occurrence: US)
  Receive Date: 20140521
  Receipt Date: 20150812
  Transmission Date: 20151125
  Serious: Yes (Hospitalization, Other)
  Sender: FDA-Public Use
  Company Number: US-PFIZER INC-2014140037

PATIENT
  Age: 66 Year
  Sex: Female
  Weight: 102 kg

DRUGS (5)
  1. ATENOLOL. [Concomitant]
     Active Substance: ATENOLOL
     Indication: SUPRAVENTRICULAR TACHYCARDIA
     Dosage: 12.5 MG, 1X/DAY (1/2 PILL DAILY)
  2. TYLENOL [Concomitant]
     Active Substance: ACETAMINOPHEN
     Dosage: 325 MG, AS NEEDED
  3. CELEBREX [Suspect]
     Active Substance: CELECOXIB
     Indication: ARTHRITIS
  4. CELEBREX [Suspect]
     Active Substance: CELECOXIB
     Indication: ARTHRALGIA
     Dosage: 200 MG, 1X/DAY
     Route: 048
     Dates: start: 201401, end: 20140516
  5. IBUPROFEN. [Concomitant]
     Active Substance: IBUPROFEN
     Indication: ARTHRALGIA
     Dosage: EVERY COUPLE OF HOURS
     Dates: start: 201310, end: 201405

REACTIONS (12)
  - Blister [Recovered/Resolved]
  - Skin haemorrhage [Recovered/Resolved]
  - Arthritis [Unknown]
  - Eczema [Recovered/Resolved]
  - Condition aggravated [Unknown]
  - Skin disorder [Not Recovered/Not Resolved]
  - Dermatitis allergic [Recovered/Resolved]
  - Cardiac disorder [Recovered/Resolved]
  - Atrial fibrillation [Recovered/Resolved with Sequelae]
  - Rash pustular [Not Recovered/Not Resolved]
  - Fall [Unknown]
  - Rash [Recovered/Resolved]

NARRATIVE: CASE EVENT DATE: 2014
